FAERS Safety Report 4394986-1 (Version None)
Quarter: 2004Q3

REPORT INFORMATION
  Report Type: 
  Country: None (occurrence: None)
  Receive Date: 20040706
  Receipt Date: 20040622
  Transmission Date: 20050211
  Serious: Yes (Hospitalization, Other)
  Sender: FDA-Public Use
  Company Number: 2004004481

PATIENT
  Age: 33 Year
  Sex: Female

DRUGS (3)
  1. RELPAX [Suspect]
     Indication: MIGRAINE
     Dosage: ORAL
     Route: 048
     Dates: end: 20040101
  2. PROPOXYPHENE HCL [Concomitant]
  3. IBUPROFEN [Concomitant]

REACTIONS (10)
  - EAR PAIN [None]
  - FEELING HOT [None]
  - HEADACHE [None]
  - HYPOAESTHESIA [None]
  - MALAISE [None]
  - MIGRAINE [None]
  - MUSCULOSKELETAL STIFFNESS [None]
  - PAIN IN JAW [None]
  - PARAESTHESIA [None]
  - SENSORY DISTURBANCE [None]
